FAERS Safety Report 23172904 (Version 2)
Quarter: 2023Q4

REPORT INFORMATION
  Report Type: Spontaneous
  Country: US (occurrence: US)
  Receive Date: 20231110
  Receipt Date: 20231110
  Transmission Date: 20240110
  Serious: No
  Sender: FDA-Public Use
  Company Number: US-GALDERMA-US2022014917

PATIENT

DRUGS (1)
  1. AKLIEF [Suspect]
     Active Substance: TRIFAROTENE
     Indication: Acne
     Dosage: 1 DOSAGE FORM, QD, AT BED TIME APPLIED ON FACE ON ZITS
     Route: 061
     Dates: start: 20220531, end: 202206

REACTIONS (3)
  - Application site scab [Unknown]
  - Application site erosion [Unknown]
  - Chemical burn of skin [Unknown]

NARRATIVE: CASE EVENT DATE: 20220101
